FAERS Safety Report 7990998-7 (Version None)
Quarter: 2011Q4

REPORT INFORMATION
  Report Type: 
  Country: None (occurrence: None)
  Receive Date: 20111219
  Receipt Date: 20111208
  Transmission Date: 20120403
  Serious: Yes (Other)
  Sender: FDA-Public Use
  Company Number: CA-BRISTOL-MYERS SQUIBB COMPANY-16281560

PATIENT
  Age: 8 Year
  Sex: Female
  Weight: 30 kg

DRUGS (2)
  1. AMPHOTERICIN B [Suspect]
  2. VFEND [Suspect]
     Indication: SINUSITIS ASPERGILLUS
     Dosage: STRENGTH:7MG/KG 7MG/KG:2WEEKS AGO INCREASED 400MG 6DEC11:12MG/KG BID POWDER FOR SOLN FOR INF

REACTIONS (1)
  - ASPERGILLOSIS [None]
